FAERS Safety Report 9633023 (Version 1)
Quarter: 2013Q4

REPORT INFORMATION
  Report Type: Report from Study
  Country: SE (occurrence: SE)
  Receive Date: 20131018
  Receipt Date: 20131018
  Transmission Date: 20140711
  Serious: Yes (Life-Threatening, Hospitalization)
  Sender: FDA-Public Use
  Company Number: SE-ROCHE-1290635

PATIENT
  Age: 73 Year
  Sex: Female

DRUGS (3)
  1. RANIBIZUMAB [Suspect]
     Indication: AGE-RELATED MACULAR DEGENERATION
     Dosage: 0.01 PRN.   LAST DOSE ON 07 JUL 2013
     Route: 050
     Dates: start: 20110321
  2. MABTHERA [Concomitant]
     Route: 065
  3. RIBOVACT [Concomitant]
     Route: 065
     Dates: start: 20131002, end: 20131015

REACTIONS (3)
  - Non-Hodgkin^s lymphoma [Not Recovered/Not Resolved]
  - Back pain [Not Recovered/Not Resolved]
  - Incorrect dose administered [Unknown]
